FAERS Safety Report 14555188 (Version 2)
Quarter: 2018Q2

REPORT INFORMATION
  Report Type: Spontaneous
  Country: US (occurrence: US)
  Receive Date: 20180220
  Receipt Date: 20180523
  Transmission Date: 20180711
  Serious: No
  Sender: FDA-Public Use
  Company Number: US-ACTELION-A-NJ2018-167851

PATIENT
  Age: 62 Year
  Sex: Female

DRUGS (2)
  1. OPSUMIT [Suspect]
     Active Substance: MACITENTAN
     Indication: IDIOPATHIC PULMONARY FIBROSIS
     Dosage: 10 MG, QD
     Route: 048
     Dates: start: 2014
  2. ERYTHROMYCIN. [Concomitant]
     Active Substance: ERYTHROMYCIN
     Dosage: UNK

REACTIONS (5)
  - Weight increased [Unknown]
  - Renal disorder [Unknown]
  - Swelling [Unknown]
  - Cough [Unknown]
  - Vomiting [Unknown]
